FAERS Safety Report 9167309 (Version 1)
Quarter: 2013Q1

REPORT INFORMATION
  Report Type: Spontaneous
  Country: BR (occurrence: BR)
  Receive Date: 20130318
  Receipt Date: 20130318
  Transmission Date: 20140127
  Serious: Yes (Other)
  Sender: FDA-Public Use
  Company Number: BR-AMGEN-BRASP2012053368

PATIENT
  Age: 78 Year
  Sex: Female
  Weight: 65 kg

DRUGS (15)
  1. ENBREL [Suspect]
     Indication: RHEUMATOID ARTHRITIS
     Dosage: 50 MG, ONCE WEEKLY
     Route: 058
     Dates: start: 201106
  2. ENBREL [Suspect]
     Dosage: 25 MG, 2 TIMES/WK, POWDER AND SOLVENT FOR SOLUTION FOR INJECTION
     Route: 058
     Dates: start: 201106
  3. SIMVASTATIN [Concomitant]
     Indication: DYSLIPIDAEMIA
     Dosage: UNK
  4. TENADREN [Concomitant]
     Indication: HYPERTENSION
     Dosage: UNK
  5. ANCORON [Concomitant]
     Indication: HYPERTENSION
     Dosage: UNK
  6. ANCORON [Concomitant]
     Indication: ARRHYTHMIA
     Dosage: 1 DF, 1X/DAY
  7. PASSIFLORA INCARNATA [Concomitant]
     Indication: ANXIETY
     Dosage: UNK
  8. RIVOTRIL [Concomitant]
     Indication: ANXIETY
     Dosage: UNK
  9. DEPURA [Concomitant]
     Indication: VITAMIN D DEFICIENCY
     Dosage: UNK
  10. ADDERA D3 [Concomitant]
     Indication: VITAMIN D DEFICIENCY
     Dosage: UNK
  11. MELOXICAM [Concomitant]
     Dosage: UNK
  12. LOSARTAN [Concomitant]
     Indication: HYPERTENSION
     Dosage: 100 MG (2 TABLETS OF 50MG), 2X/DAY (MORNING AND AFTERNOON)
  13. LOSARTAN [Concomitant]
     Indication: ARRHYTHMIA
  14. ALFAEPOETINA HUMANA RECOMBINANTE [Concomitant]
     Indication: ANAEMIA
  15. EXODUS                             /01033301/ [Concomitant]
     Dosage: 10 MG, QD

REACTIONS (10)
  - Renal disorder [Unknown]
  - Neoplasm [Unknown]
  - Skin discolouration [Unknown]
  - Pain [Unknown]
  - Weight decreased [Unknown]
  - Eating disorder [Unknown]
  - Swelling face [Unknown]
  - Oedema peripheral [Unknown]
  - Gait disturbance [Not Recovered/Not Resolved]
  - Pruritus [Unknown]
